FAERS Safety Report 8792772 (Version 2)
Quarter: 2012Q4

REPORT INFORMATION
  Report Type: 
  Country: US (occurrence: US)
  Receive Date: 20120918
  Receipt Date: 20121005
  Transmission Date: 20130627
  Serious: No
  Sender: FDA-Public Use
  Company Number: US-B.I. PHARMACEUTICALS,INC./RIDGEFIELD-2012-BP-22260BP

PATIENT
  Sex: Male

DRUGS (1)
  1. COMBIVENT [Suspect]
     Route: 055
     Dates: start: 20120827

REACTIONS (3)
  - Drug ineffective [Not Recovered/Not Resolved]
  - Product container issue [Recovered/Resolved]
  - Product taste abnormal [Recovered/Resolved]
